FAERS Safety Report 13448179 (Version 1)
Quarter: 2017Q2

REPORT INFORMATION
  Report Type: Spontaneous
  Country: GB (occurrence: GB)
  Receive Date: 20170417
  Receipt Date: 20170417
  Transmission Date: 20170830
  Serious: Yes (Other)
  Sender: FDA-Public Use
  Company Number: GB-MYLANLABS-2017M1022597

PATIENT

DRUGS (4)
  1. CITALOPRAM [Suspect]
     Active Substance: CITALOPRAM HYDROBROMIDE
     Indication: DEPRESSION
     Route: 048
  2. AMITRIPTYLINE [Concomitant]
     Active Substance: AMITRIPTYLINE
  3. ZOPICLONE [Concomitant]
     Active Substance: ZOPICLONE
  4. PREGABALIN. [Concomitant]
     Active Substance: PREGABALIN

REACTIONS (2)
  - Mental disorder [Unknown]
  - Dystonia [Unknown]
